FAERS Safety Report 18035077 (Version 4)
Quarter: 2020Q3

REPORT INFORMATION
  Report Type: Report from Study
  Country: None (occurrence: US)
  Receive Date: 20200717
  Receipt Date: 20200915
  Transmission Date: 20201103
  Serious: Yes (Other)
  Sender: FDA-Public Use
  Company Number: US-ABBVIE-20K-163-3480397-00

PATIENT
  Sex: Female

DRUGS (3)
  1. HUMIRA [Suspect]
     Active Substance: ADALIMUMAB
     Indication: PSORIATIC ARTHROPATHY
     Route: 058
  2. HUMIRA [Suspect]
     Active Substance: ADALIMUMAB
     Indication: RHEUMATOID ARTHRITIS
     Route: 058
  3. SYNTHROID [Concomitant]
     Active Substance: LEVOTHYROXINE SODIUM
     Indication: PRODUCT USED FOR UNKNOWN INDICATION

REACTIONS (43)
  - Allergy to animal [Unknown]
  - Gait inability [Unknown]
  - Hepatic enzyme decreased [Unknown]
  - Thinking abnormal [Not Recovered/Not Resolved]
  - Disturbance in attention [Unknown]
  - Blood test abnormal [Unknown]
  - Lymphadenopathy [Not Recovered/Not Resolved]
  - Dysphemia [Not Recovered/Not Resolved]
  - Feeling abnormal [Unknown]
  - Swelling [Unknown]
  - Sneezing [Unknown]
  - Stress [Unknown]
  - Pruritus allergic [Unknown]
  - Bladder disorder [Unknown]
  - Sensory loss [Not Recovered/Not Resolved]
  - Depression [Unknown]
  - Uveitis [Not Recovered/Not Resolved]
  - Drug hypersensitivity [Not Recovered/Not Resolved]
  - Pain [Unknown]
  - Papilloedema [Unknown]
  - Rhinorrhoea [Not Recovered/Not Resolved]
  - Spinal stenosis [Not Recovered/Not Resolved]
  - Hypersensitivity [Not Recovered/Not Resolved]
  - Papilloedema [Not Recovered/Not Resolved]
  - Weight increased [Not Recovered/Not Resolved]
  - Blood homocysteine abnormal [Unknown]
  - Fibromyalgia [Not Recovered/Not Resolved]
  - Pulmonary thrombosis [Unknown]
  - Insomnia [Not Recovered/Not Resolved]
  - Lyme disease [Not Recovered/Not Resolved]
  - Therapeutic response shortened [Unknown]
  - Methylenetetrahydrofolate reductase gene mutation [Not Recovered/Not Resolved]
  - C-reactive protein increased [Not Recovered/Not Resolved]
  - Memory impairment [Unknown]
  - Rheumatoid arthritis [Unknown]
  - Visual acuity reduced [Not Recovered/Not Resolved]
  - Nephropathy [Not Recovered/Not Resolved]
  - Osteoarthritis [Unknown]
  - Intervertebral disc degeneration [Not Recovered/Not Resolved]
  - Brain oedema [Unknown]
  - Thrombosis [Unknown]
  - Neuropathy peripheral [Unknown]
  - Myalgia [Unknown]
